FAERS Safety Report 5776075-4 (Version None)
Quarter: 2008Q2

REPORT INFORMATION
  Report Type: 
  Country: None (occurrence: None)
  Receive Date: 20080613
  Receipt Date: 20080604
  Transmission Date: 20081010
  Serious: Yes (Hospitalization)
  Sender: FDA-Public Use
  Company Number: 062-21880-08060279

PATIENT
  Age: 70 Year
  Sex: Male

DRUGS (1)
  1. REVLIMID (LENALIDOMIDE) (CAPSULES) [Suspect]
     Indication: MULTIPLE MYELOMA
     Dosage: ORAL
     Route: 048

REACTIONS (3)
  - BLOOD CALCIUM INCREASED [None]
  - BLOOD IMMUNOGLOBULIN G INCREASED [None]
  - PROTEIN TOTAL INCREASED [None]
